FAERS Safety Report 8423917-X (Version None)
Quarter: 2012Q2

REPORT INFORMATION
  Report Type: 
  Country: None (occurrence: None)
  Receive Date: 20120608
  Receipt Date: 20120221
  Transmission Date: 20120825
  Serious: No
  Sender: FDA-Public Use
  Company Number: US-ASTRAZENECA-2012SE12119

PATIENT
  Age: 77 Year
  Sex: Female
  Weight: 59.9 kg

DRUGS (13)
  1. HYDROXYUREA [Concomitant]
  2. MULTI-VITAMIN [Concomitant]
  3. ACETAMINOPHEN [Concomitant]
  4. HYDROCHLOROTHIAZDE TAB [Suspect]
     Route: 048
  5. AMLODIPINE [Concomitant]
  6. LABETALOL HYDROCHLORIDE [Concomitant]
  7. POTASSIUM CHLORIDE [Concomitant]
  8. OCUVITE LUTEIN [Concomitant]
  9. ATORVASTATIN CALCIUM [Concomitant]
  10. GLYBURIDE [Concomitant]
  11. MULTIVITAMIN [Concomitant]
  12. ATACAND [Suspect]
     Route: 048
  13. ASPIRIN [Concomitant]

REACTIONS (3)
  - RASH [None]
  - HYPERTENSION [None]
  - ARTHRITIS [None]
